APPROVED DRUG PRODUCT: TROPHAMINE
Active Ingredient: AMINO ACIDS
Strength: 6% (6GM/100ML)
Dosage Form/Route: INJECTABLE;INJECTION
Application: N019018 | Product #001
Applicant: B BRAUN MEDICAL INC
Approved: Jul 20, 1984 | RLD: Yes | RS: Yes | Type: RX